FAERS Safety Report 9098855 (Version 1)
Quarter: 2013Q1

REPORT INFORMATION
  Report Type: Spontaneous
  Country: US (occurrence: US)
  Receive Date: 20130213
  Receipt Date: 20130213
  Transmission Date: 20140127
  Serious: No
  Sender: FDA-Public Use
  Company Number: US-B.I. PHARMACEUTICALS,INC./RIDGEFIELD-2013-BI-04003BP

PATIENT
  Age: 72 None
  Sex: Male
  Weight: 74 kg

DRUGS (3)
  1. PRADAXA [Suspect]
     Indication: CEREBROVASCULAR ACCIDENT PROPHYLAXIS
     Dosage: 300 MG
     Route: 048
     Dates: start: 2011
  2. PRADAXA [Suspect]
     Indication: ATRIAL FIBRILLATION
  3. CORTISONE CREAM [Concomitant]
     Indication: PRURITUS
     Route: 061
     Dates: start: 201212

REACTIONS (3)
  - Skin discolouration [Not Recovered/Not Resolved]
  - Skin discolouration [Unknown]
  - Pruritus [Recovered/Resolved]
